FAERS Safety Report 4426585-7 (Version None)
Quarter: 2004Q3

REPORT INFORMATION
  Report Type: 
  Country: None (occurrence: None)
  Receive Date: 20040811
  Receipt Date: 20040728
  Transmission Date: 20050211
  Serious: Yes (Death, Hospitalization, Disabling, Other)
  Sender: FDA-Public Use
  Company Number: EWC000607104

PATIENT
  Age: 83 Year
  Sex: Female
  Weight: 56 kg

DRUGS (18)
  1. TERIPARATIDE [Suspect]
     Indication: OSTEOPOROSIS
     Dosage: 40 UG/DAY
     Dates: start: 19970603, end: 19990118
  2. CALTRATE (CALCIUM CARBONATE) [Concomitant]
  3. CENTRUM [Concomitant]
  4. ELTROXIN (LEVOTHYROXINE SODIUM) [Concomitant]
  5. GLIBETIC (GLIBENCLAMIDE0 [Concomitant]
  6. BEZALIP (BEZAFIBRATE) [Concomitant]
  7. ACETYLSALICYLIC ACID SRT [Concomitant]
  8. CORDIL (ISOSORBIDE DINITRATE) [Concomitant]
  9. ALDACTONE [Concomitant]
  10. AKNOLOL [Concomitant]
  11. FUROSEMIDE [Concomitant]
  12. ASPIRIN [Concomitant]
  13. BONDORMIN (BROTIZOLAM) [Concomitant]
  14. FOSALAN (ALENDRONATE SODIUM) [Concomitant]
  15. NORVASC [Concomitant]
  16. MONOCORD (ISOSORBIDE MONONITRATE) [Concomitant]
  17. CONVERTIN (ENALAPRIL MALEATE) [Concomitant]
  18. SIMOVIL (SIMVASTATIN) [Concomitant]

REACTIONS (11)
  - ANAEMIA [None]
  - ASTHENIA [None]
  - ATRIOVENTRICULAR BLOCK COMPLETE [None]
  - BRADYCARDIA [None]
  - CHRONIC LYMPHOCYTIC LEUKAEMIA [None]
  - CORONARY ARTERY DISEASE [None]
  - FEMUR FRACTURE [None]
  - HYPERKALAEMIA [None]
  - PNEUMONIA [None]
  - PULMONARY OEDEMA [None]
  - PYREXIA [None]
